FAERS Safety Report 8481078-5 (Version None)
Quarter: 2012Q3

REPORT INFORMATION
  Report Type: 
  Country: None (occurrence: None)
  Receive Date: 20120702
  Receipt Date: 20120628
  Transmission Date: 20120928
  Serious: Yes (Hospitalization)
  Sender: FDA-Public Use
  Company Number: PHHO2012SE009666

PATIENT

DRUGS (5)
  1. INDERAL [Concomitant]
     Dosage: 160 MG, UNK
     Route: 048
     Dates: start: 19990101
  2. LETROZOLE [Suspect]
     Indication: BREAST CANCER
     Dosage: 2.5 MG, QD
     Route: 048
     Dates: start: 20080215
  3. CALCIUM [Concomitant]
     Dosage: UNK
     Route: 048
     Dates: start: 20101213
  4. VITAMIN B-12 [Concomitant]
     Dosage: UNK
     Route: 048
     Dates: start: 20101213
  5. OMEPRAZOLE [Concomitant]
     Dosage: 40 MG, UNK
     Route: 048
     Dates: start: 20110830

REACTIONS (1)
  - BRADYCARDIA [None]
